FAERS Safety Report 19276483 (Version 1)
Quarter: 2021Q2

REPORT INFORMATION
  Report Type: Report from Study
  Country: ES (occurrence: ES)
  Receive Date: 20210519
  Receipt Date: 20210519
  Transmission Date: 20210717
  Serious: Yes (Life-Threatening, Hospitalization)
  Sender: FDA-Public Use
  Company Number: ES-GILEAD-2021-0529455

PATIENT
  Age: 56 Year
  Sex: Female
  Weight: 72 kg

DRUGS (14)
  1. PALONOSETRON. [Concomitant]
     Active Substance: PALONOSETRON HYDROCHLORIDE
     Indication: PROPHYLAXIS OF NAUSEA AND VOMITING
     Dosage: GIVEN ON DAYS 1 AND 8 PRIOR TO SACITUZUMAB
     Route: 065
     Dates: start: 20210312
  2. DALACIN C [CLINDAMYCIN] [Concomitant]
     Indication: RASH
     Dosage: 300 MG, TID (Q8H), FOR 5 DAYS
     Route: 065
     Dates: start: 20210322
  3. SACITUZUMAB GOVITECAN. [Suspect]
     Active Substance: SACITUZUMAB GOVITECAN
     Dosage: 10 MG/KG (720 MG) DAYS 1 AND 8 OF 21?DAYS CYCLE
     Route: 042
     Dates: start: 20210318, end: 20210318
  4. SACITUZUMAB GOVITECAN. [Suspect]
     Active Substance: SACITUZUMAB GOVITECAN
     Dosage: 7.5 MG/KG (REDUCED 25%) DAYS 1 AND 8 OF 21?DAYS CYCLE
     Route: 042
     Dates: start: 20210408, end: 20210408
  5. RANITIDINE. [Concomitant]
     Active Substance: RANITIDINE
     Indication: ALLERGY PROPHYLAXIS
     Dosage: GIVEN ON DAYS 1 AND 8 PRIOR TO SACITUZUMAB
     Route: 065
     Dates: start: 20210312
  6. RANITIDINE. [Concomitant]
     Active Substance: RANITIDINE
     Indication: CHEMOTHERAPY SIDE EFFECT PROPHYLAXIS
  7. DEXAMETHASONE. [Concomitant]
     Active Substance: DEXAMETHASONE
     Indication: PROPHYLAXIS
     Dosage: GIVEN ON DAYS 1 AND 8 PRIOR TO SACITUZUMAB
     Route: 065
     Dates: start: 20210312
  8. DALACIN C [CLINDAMYCIN] [Concomitant]
     Indication: DIARRHOEA
  9. DALACIN C [CLINDAMYCIN] [Concomitant]
     Indication: FEBRILE NEUTROPENIA
  10. PARACETAMOL [Concomitant]
     Active Substance: ACETAMINOPHEN
     Indication: CHEMOTHERAPY SIDE EFFECT PROPHYLAXIS
     Dosage: GIVEN ON DAYS 1 AND 8 PRIOR TO SACITUZUMAB
     Route: 065
     Dates: start: 20210312
  11. DEXCHLORPHENIRAMINE [Concomitant]
     Active Substance: DEXCHLORPHENIRAMINE
     Indication: ALLERGY PROPHYLAXIS
     Dosage: GIVEN ON DAYS 1 AND 8 PRIOR TO SACITUZUMAB
     Route: 065
     Dates: start: 20210312
  12. PALONOSETRON. [Concomitant]
     Active Substance: PALONOSETRON HYDROCHLORIDE
     Indication: CHEMOTHERAPY SIDE EFFECT PROPHYLAXIS
  13. SACITUZUMAB GOVITECAN. [Suspect]
     Active Substance: SACITUZUMAB GOVITECAN
     Indication: BREAST CANCER METASTATIC
     Dosage: 10 MG/KG (720 MG) DAYS 1 AND 8 OF 21?DAYS CYCLE
     Route: 042
     Dates: start: 20210312, end: 20210312
  14. DEXCHLORPHENIRAMINE [Concomitant]
     Active Substance: DEXCHLORPHENIRAMINE
     Indication: CHEMOTHERAPY SIDE EFFECT PROPHYLAXIS

REACTIONS (1)
  - Febrile neutropenia [Recovered/Resolved]

NARRATIVE: CASE EVENT DATE: 20210324
